FAERS Safety Report 11658813 (Version 2)
Quarter: 2015Q4

REPORT INFORMATION
  Report Type: Report from Study
  Country: US (occurrence: US)
  Receive Date: 20151026
  Receipt Date: 20151202
  Transmission Date: 20160304
  Serious: Yes (Hospitalization)
  Sender: FDA-Public Use
  Company Number: US-PFIZER INC-2015345821

PATIENT
  Age: 65 Year
  Sex: Female
  Weight: 124.5 kg

DRUGS (8)
  1. VICTOZA [Concomitant]
     Active Substance: LIRAGLUTIDE
     Indication: TYPE 2 DIABETES MELLITUS
     Dosage: 18 MG, QD
     Route: 048
     Dates: start: 20150301
  2. LYRICA [Concomitant]
     Active Substance: PREGABALIN
     Indication: RESTLESS LEGS SYNDROME
     Dosage: 50 MG, BID
     Route: 048
     Dates: start: 20150301
  3. GLIMEPIRIDE. [Concomitant]
     Active Substance: GLIMEPIRIDE
     Indication: TYPE 2 DIABETES MELLITUS
     Dosage: 2.5 MG, QD
     Route: 048
     Dates: start: 20150301
  4. TRAMADOL. [Concomitant]
     Active Substance: TRAMADOL
     Indication: NERVE COMPRESSION
     Dosage: 5 MG, QD
     Route: 048
     Dates: start: 20140701
  5. WELCHOL [Concomitant]
     Active Substance: COLESEVELAM HYDROCHLORIDE
     Indication: HYPERLIPIDAEMIA
     Dosage: 625 MG, 4-6 TABS, QD
     Route: 048
     Dates: start: 20131101
  6. LOSARTAN. [Concomitant]
     Active Substance: LOSARTAN
     Indication: TYPE 2 DIABETES MELLITUS
     Dosage: 12.5 MG, QD
     Route: 048
     Dates: start: 20150301
  7. ZYRTEC [Concomitant]
     Active Substance: CETIRIZINE HYDROCHLORIDE
     Indication: SEASONAL ALLERGY
     Dosage: 10 MG, QD
     Route: 048
     Dates: start: 20120101
  8. TOFACITINIB CITRATE [Suspect]
     Active Substance: TOFACITINIB CITRATE
     Indication: RHEUMATOID ARTHRITIS
     Dosage: 10 MG, BID
     Route: 048
     Dates: start: 20100512, end: 20150805

REACTIONS (1)
  - Airway peak pressure increased [Recovering/Resolving]

NARRATIVE: CASE EVENT DATE: 20150929
